FAERS Safety Report 23086997 (Version 1)
Quarter: 2023Q4

REPORT INFORMATION
  Report Type: Spontaneous
  Country: IT (occurrence: IT)
  Receive Date: 20231020
  Receipt Date: 20231020
  Transmission Date: 20240110
  Serious: Yes (Hospitalization)
  Sender: FDA-Public Use
  Company Number: IT-MINISAL02-948661

PATIENT
  Age: 59 Year
  Sex: Male

DRUGS (3)
  1. QUETIAPINE [Suspect]
     Active Substance: QUETIAPINE
     Indication: Product used for unknown indication
     Dosage: 12 GRAM
     Route: 048
     Dates: start: 20221111
  2. LITHIUM CARBONATE [Suspect]
     Active Substance: LITHIUM CARBONATE
     Indication: Product used for unknown indication
     Dosage: 4.35 GRAM,DOSAGGIO: 4.35UNITA DI MISURA: GRAMMI VIA SOMMINISTRAZIONE: ORALE
     Route: 048
  3. RIVOTRIL [Suspect]
     Active Substance: CLONAZEPAM
     Indication: Product used for unknown indication
     Dosage: 8.5 MILLIGRAM,DOSAGGIO: 8.5UNITA DI MISURA: MILLIGRAMMI VIA SOMMINISTRAZIONE: ORALE
     Route: 048

REACTIONS (2)
  - Sopor [Recovering/Resolving]
  - Toxicity to various agents [Recovering/Resolving]

NARRATIVE: CASE EVENT DATE: 20221111
